FAERS Safety Report 23255383 (Version 1)
Quarter: 2023Q4

REPORT INFORMATION
  Report Type: Spontaneous
  Country: GB (occurrence: GB)
  Receive Date: 20231203
  Receipt Date: 20231203
  Transmission Date: 20240109
  Serious: Yes (Other)
  Sender: FDA-Public Use
  Company Number: None

PATIENT
  Age: 42 Year
  Sex: Female
  Weight: 52 kg

DRUGS (2)
  1. TOPIRAMATE [Suspect]
     Active Substance: TOPIRAMATE
     Indication: Product used for unknown indication
     Dosage: INITIALLY 25MG FOR 1 WEEK, DOSE TO BE TAKEN AT...
     Route: 065
     Dates: start: 20230929
  2. AMITRIPTYLINE HYDROCHLORIDE [Concomitant]
     Active Substance: AMITRIPTYLINE HYDROCHLORIDE
     Indication: Product used for unknown indication
     Dosage: AT NIGHT FOR 2 WEEKS THEN 2 AT NIGHT, GRADUAL...
     Route: 065
     Dates: start: 20230119, end: 20230929

REACTIONS (2)
  - Swollen tongue [Recovered/Resolved]
  - Pharyngeal swelling [Unknown]
